FAERS Safety Report 25237322 (Version 1)
Quarter: 2025Q2

REPORT INFORMATION
  Report Type: Spontaneous
  Country: FR (occurrence: FR)
  Receive Date: 20250425
  Receipt Date: 20250425
  Transmission Date: 20250717
  Serious: Yes (Other)
  Sender: CELLTRION
  Company Number: FR-PFIZER INC-202400259605

PATIENT

DRUGS (3)
  1. ADALIMUMAB [Suspect]
     Active Substance: ADALIMUMAB
     Indication: Crohn^s disease
     Route: 058
     Dates: start: 2015
  2. USTEKINUMAB [Suspect]
     Active Substance: USTEKINUMAB
     Indication: Product used for unknown indication
  3. VEDOLIZUMAB [Concomitant]
     Active Substance: VEDOLIZUMAB
     Dates: start: 202102

REACTIONS (11)
  - Large intestinal stenosis [Unknown]
  - Colitis microscopic [Unknown]
  - Large intestinal ulcer [Unknown]
  - Diarrhoea [Unknown]
  - Faecal calprotectin increased [Unknown]
  - Lymphadenopathy [Unknown]
  - Anal fistula [Recovered/Resolved]
  - Drug intolerance [Unknown]
  - Abdominal pain [Unknown]
  - Drug ineffective [Unknown]
  - Maternal exposure during pregnancy [Unknown]

NARRATIVE: CASE EVENT DATE: 20210101
